FAERS Safety Report 24597885 (Version 5)
Quarter: 2025Q2

REPORT INFORMATION
  Report Type: Spontaneous
  Country: US (occurrence: US)
  Receive Date: 20241110
  Receipt Date: 20250511
  Transmission Date: 20250716
  Serious: No
  Sender: SANOFI AVENTIS
  Company Number: US-SA-2024SA305200

PATIENT
  Age: 47 Year
  Sex: Female

DRUGS (2)
  1. DUPIXENT [Suspect]
     Active Substance: DUPILUMAB
     Indication: Eczema
     Route: 058
     Dates: start: 202407, end: 202407
  2. DUPIXENT [Suspect]
     Active Substance: DUPILUMAB
     Indication: Dermatitis atopic
     Dosage: 300 MG, QOW
     Route: 058
     Dates: start: 2024

REACTIONS (7)
  - Dermatitis atopic [Recovered/Resolved]
  - Eczema [Recovered/Resolved]
  - Skin fissures [Recovered/Resolved]
  - Gait disturbance [Recovered/Resolved]
  - Dry skin [Recovered/Resolved]
  - Injection site pain [Unknown]
  - Device use issue [Unknown]

NARRATIVE: CASE EVENT DATE: 20240101
